FAERS Safety Report 18335385 (Version 1)
Quarter: 2020Q4

REPORT INFORMATION
  Report Type: Spontaneous
  Country: DE (occurrence: DE)
  Receive Date: 20201001
  Receipt Date: 20201001
  Transmission Date: 20210113
  Serious: Yes (Hospitalization)
  Sender: FDA-Public Use
  Company Number: DE-TEVA-2020-DE-1832239

PATIENT
  Age: 80 Year
  Sex: Female

DRUGS (12)
  1. MIRCERA100MIKROGRAMM [Concomitant]
     Dosage: 100 MCG, EVERY 14 DAYS
     Route: 058
  2. FUROSEMID [Concomitant]
     Active Substance: FUROSEMIDE
     Dosage: .5 MILLIGRAM DAILY; 125 MG, 0.5-0-0-0,
     Route: 048
  3. ESCITALOPRAM [Concomitant]
     Active Substance: ESCITALOPRAM OXALATE
     Dosage: 3 GTT DAILY; 3 GTT, 1-0-0-0, DROPS
     Route: 048
  4. CANDESARTAN. [Concomitant]
     Active Substance: CANDESARTAN
     Dosage: 8 MILLIGRAM DAILY; 8 MG, 1-0-1-0,
     Route: 048
  5. PHENPROCOUMON [Suspect]
     Active Substance: PHENPROCOUMON
     Dosage: 3 MG, ACCORDING TO INR
     Route: 048
  6. FEBUXOSTAT. [Concomitant]
     Active Substance: FEBUXOSTAT
     Dosage: .5 DOSAGE FORMS DAILY; 80 MG, 0.5-0-0-0
     Route: 048
  7. URAPIDIL [Concomitant]
     Active Substance: URAPIDIL
     Dosage: 30 MILLIGRAM DAILY; 1-0-0-0,
     Route: 048
  8. SPIRONOLACTON [Suspect]
     Active Substance: SPIRONOLACTONE
     Dosage: .5 DOSAGE FORMS DAILY; 50 MG, 0.5-0-0-0
     Route: 048
  9. COLECALCIFEROL (VITAMIN D) [Concomitant]
     Dosage: 20,000 IU / MONTH, 2X
     Route: 048
  10. DEFERASIROX. [Concomitant]
     Active Substance: DEFERASIROX
     Dosage: 360 MILLIGRAM DAILY; 1-0-0-0
     Route: 048
  11. AMLODIPIN [Concomitant]
     Active Substance: AMLODIPINE BESYLATE
     Dosage: .5 DOSAGE FORMS DAILY; 10 MG, 0-0-0.5-0
     Route: 048
  12. METOPROLOL. [Concomitant]
     Active Substance: METOPROLOL
     Dosage: 1 DOSAGE FORMS DAILY; 47.5 MG, 0.5-0-0.5-0,
     Route: 048

REACTIONS (5)
  - Pallor [Recovering/Resolving]
  - General physical health deterioration [Recovering/Resolving]
  - Haemorrhoidal haemorrhage [Recovering/Resolving]
  - Fatigue [Recovering/Resolving]
  - Anaemia [Recovering/Resolving]
